FAERS Safety Report 9471399 (Version 2)
Quarter: 2013Q3

REPORT INFORMATION
  Report Type: Spontaneous
  Country: JP (occurrence: None)
  Receive Date: 20130819
  Receipt Date: 20130906
  Transmission Date: 20140515
  Serious: Yes (Death, Life-Threatening, Disabling, Other)
  Sender: FDA-Public Use
  Company Number: EUS-2013-00479

PATIENT
  Age: 63 Year
  Sex: Male

DRUGS (22)
  1. ASPARAGINASE [Suspect]
     Indication: PRODUCT USED FOR UNKNOWN INDICATION
     Dates: start: 20111001, end: 20111023
  2. SPRYCEL (DASATINIB) [Suspect]
     Indication: ACUTE LYMPHOCYTIC LEUKAEMIA
     Dosage: 280 MG (140 MG, 2 IN 1 DAYS), ORAL
     Route: 048
     Dates: start: 20111011, end: 20111017
  3. LEUNASE (ASPARAGINSE) (ASPARAGINASE) [Concomitant]
  4. ADRIAMYCIN (DOXORUBICIN) (DOXORUBICIN) [Concomitant]
  5. ONCOVIN (VINCROSTINE SULFATE) (VINCRISTINE SULFATE) [Concomitant]
  6. PREDONINE (PREDNISOLONE) (PREDNISOLONE) [Concomitant]
  7. MAXIPIME (CEFEPIME HYDROCHLORIDE) (CEFEDPIME HYDROCHLORIDE) [Concomitant]
  8. FUNGUARD (MICAFUNGIN SODIUM) (MICAFUNGIN SODIUM) [Concomitant]
  9. FOY (GABEXATE MESILATE) (GABEXATE MESILATE) [Concomitant]
  10. MEROPEN (MEROPENEM) (MEROPENEM) [Concomitant]
  11. DIFLUCAN (FLUCONAZOLE) (FLUCONAZOLE) [Concomitant]
  12. LASIX (FUROSEMIDE) (FUROSEMIDE) [Concomitant]
  13. INOVAN (DOPAMINE HYDROCHLORIDE) (DOPAMINE HYDROCHLORIDE) [Concomitant]
  14. VINCRISTINE (VINCRISTINE) (VINCRISTINE) [Concomitant]
  15. PREDNISOLONE (PREDNISOLONE) (PREDNISOLONE) [Concomitant]
  16. CYCLOPHOSPHAMIDE (CYCLOPHOSPHAMIDE) (CYCLOPHOSPHAMIDE) [Concomitant]
  17. DEXAMETHASONE (DEXAMETHASONE) (DEXAMETHASONE) [Concomitant]
  18. THROMBOMODULIN (THROMBOMODULIN ALFA) (THROMBOMODULINC ALFA) [Concomitant]
  19. G-CSF (GRANULOCYTE COLONE STIMULATING FACTOR) (GRANULOCYTE COLON STIMULATING FACTOR) [Concomitant]
  20. IMATINIB (IMATINIB) (IMTINIB) [Concomitant]
  21. METHOTREXATE (METHOTREXATE) (METHOTREXATE) [Concomitant]
  22. CYTARABINE (CYTARABINE) (CYTARABINE) [Concomitant]

REACTIONS (29)
  - Pulmonary haemorrhage [None]
  - Gastrointestinal haemorrhage [None]
  - White blood cell count decreased [None]
  - Platelet count decreased [None]
  - Muscle haemorrhage [None]
  - Haematochezia [None]
  - Diarrhoea [None]
  - Renal impairment [None]
  - Neutropenia [None]
  - Anaemia [None]
  - Disseminated intravascular coagulation [None]
  - Tumour lysis syndrome [None]
  - Fall [None]
  - Subcutaneous haematoma [None]
  - Generalised oedema [None]
  - Ascites [None]
  - Pleural effusion [None]
  - Hepatic function abnormal [None]
  - Mucous membrane disorder [None]
  - Cardiac arrest [None]
  - Respiratory arrest [None]
  - Mucous stools [None]
  - Hyperuricaemia [None]
  - Bone marrow failure [None]
  - Depressed level of consciousness [None]
  - Drug ineffective [None]
  - Amylase increased [None]
  - Blood pressure decreased [None]
  - Condition aggravated [None]
